FAERS Safety Report 7964834-9 (Version None)
Quarter: 2011Q4

REPORT INFORMATION
  Report Type: 
  Country: None (occurrence: None)
  Receive Date: 20111208
  Receipt Date: 20111130
  Transmission Date: 20120403
  Serious: Yes (Hospitalization)
  Sender: FDA-Public Use
  Company Number: PHEH2011US010539

PATIENT
  Age: 48 Year
  Sex: Male

DRUGS (3)
  1. HYDROCHLOROTHIAZIDE [Suspect]
     Dosage: 25 MG, QD
  2. TEGRETOL-XR [Suspect]
     Indication: CONVULSION
     Dosage: 400MG 2XDAY AND 100MG 2XDAY.
  3. LISINOPRIL [Concomitant]
     Dosage: 10 MG, QD

REACTIONS (2)
  - ROAD TRAFFIC ACCIDENT [None]
  - CONVULSION [None]
